FAERS Safety Report 24409670 (Version 1)
Quarter: 2024Q4

REPORT INFORMATION
  Report Type: Spontaneous
  Country: BR (occurrence: BR)
  Receive Date: 20241008
  Receipt Date: 20241008
  Transmission Date: 20250115
  Serious: Yes (Other)
  Sender: ROCHE
  Company Number: BR-ROCHE-10000098859

PATIENT
  Age: 42 Year
  Sex: Female

DRUGS (4)
  1. RITUXIMAB [Suspect]
     Active Substance: RITUXIMAB
     Indication: Optic neuritis
     Route: 065
     Dates: start: 201907
  2. RITUXIMAB [Suspect]
     Active Substance: RITUXIMAB
     Indication: Multiple sclerosis
  3. AZATHIOPRINE [Concomitant]
     Active Substance: AZATHIOPRINE
     Indication: Multiple sclerosis
     Dates: start: 201111
  4. AZATHIOPRINE [Concomitant]
     Active Substance: AZATHIOPRINE
     Indication: Optic neuritis

REACTIONS (6)
  - Amaurosis [Unknown]
  - Paraplegia [Unknown]
  - Infection [Unknown]
  - Wheelchair user [Unknown]
  - Muscle spasms [Unknown]
  - Product use in unapproved indication [Unknown]
